FAERS Safety Report 4637974-X (Version None)
Quarter: 2005Q2

REPORT INFORMATION
  Report Type: 
  Country: None (occurrence: None)
  Receive Date: 20050325
  Receipt Date: 20041122
  Transmission Date: 20051028
  Serious: No
  Sender: FDA-Public Use
  Company Number: USA041184333

PATIENT
  Age: 77 Year
  Sex: Female

DRUGS (4)
  1. FORTEO [Suspect]
     Indication: OSTEOPOROSIS
     Dates: start: 20030601
  2. VIOXX [Concomitant]
  3. PREDNISONE [Concomitant]
  4. REMICADE [Concomitant]

REACTIONS (5)
  - CROHN'S DISEASE [None]
  - JOINT SWELLING [None]
  - LACRIMATION INCREASED [None]
  - OEDEMA PERIPHERAL [None]
  - VISION BLURRED [None]
